FAERS Safety Report 20178275 (Version 2)
Quarter: 2021Q4

REPORT INFORMATION
  Report Type: Report from Study
  Country: GB (occurrence: GB)
  Receive Date: 20211213
  Receipt Date: 20211223
  Transmission Date: 20220303
  Serious: Yes (Hospitalization)
  Sender: FDA-Public Use
  Company Number: GB-BAXTER-2021BAX039297

PATIENT
  Age: 64 Year
  Sex: Female

DRUGS (1)
  1. SODIUM CHLORIDE [Suspect]
     Active Substance: SODIUM CHLORIDE
     Indication: Short-bowel syndrome
     Dosage: 1000 ML, INFUSION DURATION: 12 HOURS
     Route: 042

REACTIONS (2)
  - Vascular device infection [Not Recovered/Not Resolved]
  - Klebsiella test positive [Not Recovered/Not Resolved]

NARRATIVE: CASE EVENT DATE: 20211130
